FAERS Safety Report 18712490 (Version 1)
Quarter: 2021Q1

REPORT INFORMATION
  Report Type: Spontaneous
  Country: CA (occurrence: CA)
  Receive Date: 20210107
  Receipt Date: 20210107
  Transmission Date: 20210419
  Serious: Yes (Death, Other)
  Sender: FDA-Public Use
  Company Number: CA-PFIZER INC-2020500175

PATIENT
  Age: 30 Year
  Sex: Male
  Weight: 96 kg

DRUGS (2)
  1. ZIRABEV [Suspect]
     Active Substance: BEVACIZUMAB-BVZR
     Dosage: 960 MG, EVERY 2 WEEKS
     Route: 042
     Dates: start: 20201216, end: 20201216
  2. ZIRABEV [Suspect]
     Active Substance: BEVACIZUMAB-BVZR
     Dosage: 960 MG, EVERY 2 WEEKS
     Route: 042
     Dates: start: 20201216, end: 20201216

REACTIONS (2)
  - Death [Fatal]
  - Blood pressure increased [Unknown]

NARRATIVE: CASE EVENT DATE: 20201216
